FAERS Safety Report 11162638 (Version 1)
Quarter: 2015Q2

REPORT INFORMATION
  Report Type: Spontaneous
  Country: US (occurrence: US)
  Receive Date: 20150604
  Receipt Date: 20150604
  Transmission Date: 20150821
  Serious: No
  Sender: FDA-Public Use
  Company Number: US-SA-2014SA179998

PATIENT
  Age: 72 Year
  Sex: Male

DRUGS (5)
  1. NOVOLOG [Suspect]
     Active Substance: INSULIN ASPART
     Route: 065
     Dates: start: 201411
  2. LANTUS SOLOSTAR [Suspect]
     Active Substance: INSULIN GLARGINE
     Indication: TYPE 2 DIABETES MELLITUS
     Dosage: DOSE:45 UNIT(S)
     Route: 065
     Dates: start: 2011
  3. METFORMIN [Concomitant]
     Active Substance: METFORMIN HYDROCHLORIDE
  4. SOLOSTAR [Concomitant]
     Active Substance: DEVICE
  5. GLIPIZIDE. [Suspect]
     Active Substance: GLIPIZIDE
     Route: 065

REACTIONS (3)
  - Pain in extremity [Unknown]
  - Heart rate decreased [Unknown]
  - Hypoglycaemia [Unknown]

NARRATIVE: CASE EVENT DATE: 2014
